FAERS Safety Report 25362870 (Version 1)
Quarter: 2025Q2

REPORT INFORMATION
  Report Type: Spontaneous
  Country: US (occurrence: US)
  Receive Date: 20250527
  Receipt Date: 20250527
  Transmission Date: 20250717
  Serious: No
  Sender: GLAXOSMITHKLINE
  Company Number: US-GSK-US2025055764

PATIENT
  Age: 26 Year
  Sex: Female

DRUGS (2)
  1. BENLYSTA [Suspect]
     Active Substance: BELIMUMAB
     Indication: Systemic lupus erythematosus
     Dosage: 200 MG, WE
     Route: 058
     Dates: start: 20250316
  2. WARFARIN [Concomitant]
     Active Substance: WARFARIN
     Indication: Thrombosis prophylaxis
     Dosage: 100 MG, QD

REACTIONS (3)
  - Platelet count decreased [Not Recovered/Not Resolved]
  - Double stranded DNA antibody positive [Not Recovered/Not Resolved]
  - Complement factor abnormal [Not Recovered/Not Resolved]

NARRATIVE: CASE EVENT DATE: 20250401
